FAERS Safety Report 18405796 (Version 1)
Quarter: 2020Q4

REPORT INFORMATION
  Report Type: Spontaneous
  Country: US (occurrence: US)
  Receive Date: 20201020
  Receipt Date: 20201020
  Transmission Date: 20210114
  Serious: No
  Sender: FDA-Public Use
  Company Number: US-NOVOPROD-747250

PATIENT
  Sex: Female

DRUGS (1)
  1. VAGIFEM [Suspect]
     Active Substance: ESTRADIOL
     Indication: SMEAR CERVIX
     Dosage: 10 MCG
     Route: 067
     Dates: start: 202008

REACTIONS (3)
  - Product shape issue [Not Recovered/Not Resolved]
  - Off label use [Unknown]
  - Application site laceration [Not Recovered/Not Resolved]

NARRATIVE: CASE EVENT DATE: 202008
